FAERS Safety Report 18417254 (Version 1)
Quarter: 2020Q4

REPORT INFORMATION
  Report Type: Spontaneous
  Country: US (occurrence: US)
  Receive Date: 20201022
  Receipt Date: 20201022
  Transmission Date: 20210114
  Serious: No
  Sender: FDA-Public Use
  Company Number: US-009507513-2010USA004383

PATIENT

DRUGS (3)
  1. STERILE DILUENT (WATER) [Suspect]
     Active Substance: WATER
     Indication: MEDICATION DILUTION
     Dosage: UNK
     Dates: start: 20201010, end: 20201010
  2. VARIVAX [Suspect]
     Active Substance: VARICELLA-ZOSTER VIRUS STRAIN OKA/MERCK LIVE ANTIGEN
     Indication: PROPHYLAXIS
     Dosage: .5 MILLILITER
     Dates: start: 20201010
  3. M-M-R II [Suspect]
     Active Substance: MEASLES VIRUS STRAIN ENDERS^ ATTENUATED EDMONSTON LIVE ANTIGEN\MUMPS VIRUS STRAIN B LEVEL JERYL LYNN LIVE ANTIGEN\RUBELLA VIRUS STRAIN WISTAR RA 27/3 LIVE ANTIGEN
     Indication: PROPHYLAXIS
     Dosage: .5 MILLILITER
     Dates: start: 20201010

REACTIONS (1)
  - Out of specification product use [Unknown]

NARRATIVE: CASE EVENT DATE: 20201010
